FAERS Safety Report 12780995 (Version 1)
Quarter: 2016Q3

REPORT INFORMATION
  Report Type: Other
  Country: None (occurrence: IN)
  Receive Date: 20160926
  Receipt Date: 20160926
  Transmission Date: 20161109
  Serious: Yes (Hospitalization)
  Sender: FDA-Public Use
  Company Number: IN-MERCK KGAA-1057701

PATIENT

DRUGS (1)
  1. NOVOTHYROX [Suspect]
     Active Substance: LEVOTHYROXINE SODIUM

REACTIONS (6)
  - Oligohydramnios [None]
  - Maternal exposure during pregnancy [None]
  - Off label use [None]
  - Pancreatitis acute [None]
  - Pre-eclampsia [None]
  - Live birth [None]
